FAERS Safety Report 7624225-7 (Version None)
Quarter: 2011Q3

REPORT INFORMATION
  Report Type: 
  Country: None (occurrence: None)
  Receive Date: 20110712
  Receipt Date: 20110627
  Transmission Date: 20111222
  Serious: Yes (Death)
  Sender: FDA-Public Use
  Company Number: 1000021970

PATIENT
  Age: 54 Year

DRUGS (4)
  1. CITALOPRAM HYDROBROMIDE [Suspect]
     Indication: OVERDOSE
  2. ACETAMINOPHEN [Suspect]
     Dosage: POSSIBLE OVERDOSE
  3. METOCLOPRAMIDE [Suspect]
     Dosage: POSSIBLE OVERDOSE
  4. METHADONE HCL [Suspect]

REACTIONS (8)
  - ACCIDENTAL POISONING [None]
  - HEPATITIS [None]
  - CIRRHOSIS ALCOHOLIC [None]
  - RESPIRATORY DEPRESSION [None]
  - TOXICITY TO VARIOUS AGENTS [None]
  - OVERDOSE [None]
  - ARRHYTHMIA [None]
  - PULMONARY CONGESTION [None]
